FAERS Safety Report 8626047-7 (Version None)
Quarter: 2012Q3

REPORT INFORMATION
  Report Type: 
  Country: None (occurrence: None)
  Receive Date: 20120827
  Receipt Date: 20120817
  Transmission Date: 20120928
  Serious: Yes (Other)
  Sender: FDA-Public Use
  Company Number: US-ALLERGAN-1211431US

PATIENT
  Age: 48 Year
  Sex: Female

DRUGS (4)
  1. LASTACAFT [Suspect]
     Dosage: 2 GTT, QD
     Route: 047
     Dates: start: 20120712
  2. ZATADOR [Concomitant]
     Route: 047
  3. LASTACAFT [Suspect]
     Dosage: 2 GTT, QD
     Route: 047
     Dates: start: 20110618
  4. BACITRACIN [Concomitant]
     Dosage: UNK
     Dates: start: 20110618

REACTIONS (8)
  - CONJUNCTIVITIS ALLERGIC [None]
  - ERYTHEMA OF EYELID [None]
  - RHINITIS ALLERGIC [None]
  - ERYTHEMA [None]
  - LACRIMATION INCREASED [None]
  - EYELID OEDEMA [None]
  - EYE PRURITUS [None]
  - DERMATITIS [None]
